FAERS Safety Report 10561805 (Version 2)
Quarter: 2019Q1

REPORT INFORMATION
  Report Type: Spontaneous
  Country: DE (occurrence: DE)
  Receive Date: 20141103
  Receipt Date: 20190129
  Transmission Date: 20190417
  Serious: Yes (Death, Other)
  Sender: FDA-Public Use
  Company Number: PHHY2014DE140756

PATIENT
  Age: 38 Year
  Sex: Female

DRUGS (6)
  1. CISPLATIN. [Suspect]
     Active Substance: CISPLATIN
     Indication: ADENOCARCINOMA
  2. GEMCITABINE [Suspect]
     Active Substance: GEMCITABINE\GEMCITABINE HYDROCHLORIDE
     Indication: CHOLANGIOCARCINOMA
     Dosage: 1000 MG/M2, QD ON DAYS 1 AND 8 OF A 21- DAY CYCLE
     Route: 065
  3. GEMCITABINE [Suspect]
     Active Substance: GEMCITABINE\GEMCITABINE HYDROCHLORIDE
     Indication: ADENOCARCINOMA
  4. CISPLATIN. [Suspect]
     Active Substance: CISPLATIN
     Indication: CHOLANGIOCARCINOMA
     Dosage: 50 MG/M2 ON DAY 1, ON DAYS 1 AND 8 OF A 21 DAY CYCLE
     Route: 065
  5. CISPLATIN. [Suspect]
     Active Substance: CISPLATIN
     Indication: METASTASES TO BILIARY TRACT
  6. PACLITAXEL. [Suspect]
     Active Substance: PACLITAXEL
     Indication: CHOLANGIOCARCINOMA
     Route: 065

REACTIONS (11)
  - Leukopenia [Unknown]
  - Premature delivery [Unknown]
  - Death [Fatal]
  - Haematotoxicity [Unknown]
  - Metastases to bone [Unknown]
  - Polyneuropathy [Unknown]
  - Maternal exposure during pregnancy [Recovered/Resolved]
  - Metastases to liver [Unknown]
  - Malignant neoplasm progression [Fatal]
  - Metastases to pelvis [Unknown]
  - Drug effect incomplete [Unknown]
